FAERS Safety Report 10199795 (Version 1)
Quarter: 2014Q2

REPORT INFORMATION
  Report Type: Spontaneous
  Country: US (occurrence: US)
  Receive Date: 20140527
  Receipt Date: 20140527
  Transmission Date: 20141212
  Serious: No
  Sender: FDA-Public Use
  Company Number: US-NOVEN-14US008959

PATIENT
  Age: 11 Year
  Sex: Male
  Weight: 36.28 kg

DRUGS (1)
  1. DAYTRANA [Suspect]
     Indication: ATTENTION DEFICIT/HYPERACTIVITY DISORDER
     Dosage: 30 MG, UNK
     Route: 062

REACTIONS (6)
  - Influenza [Not Recovered/Not Resolved]
  - Pruritus [Recovered/Resolved]
  - Application site erosion [Recovered/Resolved]
  - Application site scab [Recovered/Resolved]
  - Drug dose omission [Not Recovered/Not Resolved]
  - Product quality issue [Recovered/Resolved]
